FAERS Safety Report 5006819-0 (Version None)
Quarter: 2006Q2

REPORT INFORMATION
  Report Type: 
  Country: None (occurrence: None)
  Receive Date: 20060516
  Receipt Date: 20060502
  Transmission Date: 20061013
  Serious: Yes (Hospitalization)
  Sender: FDA-Public Use
  Company Number: 2006BL002291

PATIENT
  Age: 59 Year
  Sex: Female
  Weight: 73 kg

DRUGS (6)
  1. CARTEOL 2% COLLYRE (CARTEOLOL HYDROCHLORIDE) [Suspect]
     Dosage: OPHTHALMIC
     Route: 048
     Dates: end: 20051104
  2. DIFRAREL [Concomitant]
  3. OCUVITE [Concomitant]
  4. CLIMASTON [Concomitant]
  5. LEVOTHYROX [Concomitant]
  6. TRUSOPT /GFR/ [Concomitant]

REACTIONS (15)
  - ALVEOLITIS [None]
  - ANTINUCLEAR ANTIBODY POSITIVE [None]
  - COUGH [None]
  - DEAFNESS [None]
  - DRY SKIN [None]
  - DYSPNOEA EXERTIONAL [None]
  - EYE PAIN [None]
  - LUNG DISORDER [None]
  - LUPUS-LIKE SYNDROME [None]
  - OCULAR HYPERTENSION [None]
  - PARAESTHESIA [None]
  - PLEUROPERICARDITIS [None]
  - PYREXIA [None]
  - RALES [None]
  - SYSTEMIC LUPUS ERYTHEMATOSUS [None]
